FAERS Safety Report 23108365 (Version 1)
Quarter: 2023Q4

REPORT INFORMATION
  Report Type: Spontaneous
  Country: US (occurrence: None)
  Receive Date: 20231024
  Receipt Date: 20231024
  Transmission Date: 20240110
  Serious: Yes (Hospitalization)
  Sender: FDA-Public Use
  Company Number: None

PATIENT
  Age: 72 Year
  Sex: Male

DRUGS (1)
  1. AMIODARONE HYDROCHLORIDE [Suspect]
     Active Substance: AMIODARONE HYDROCHLORIDE
     Dosage: FREQUENCY : TWICE A DAY;?
     Route: 048
     Dates: start: 20201227, end: 20211210

REACTIONS (3)
  - Acute respiratory failure [None]
  - Toxicity to various agents [None]
  - Acute respiratory failure [None]

NARRATIVE: CASE EVENT DATE: 20211125
